FAERS Safety Report 7750922-9 (Version None)
Quarter: 2011Q3

REPORT INFORMATION
  Report Type: 
  Country: None (occurrence: None)
  Receive Date: 20110914
  Receipt Date: 20110907
  Transmission Date: 20111222
  Serious: Yes (Death, Hospitalization, Disabling, Other)
  Sender: FDA-Public Use
  Company Number: PH-GENZYME-THYM-1001912

PATIENT
  Sex: Female
  Weight: 44 kg

DRUGS (12)
  1. CYCLOPHOSPHAMIDE [Concomitant]
     Dosage: 100 MG, QD
     Route: 065
     Dates: start: 20100714, end: 20100801
  2. THYMOGLOBULIN [Suspect]
     Indication: PROPHYLAXIS AGAINST TRANSPLANT REJECTION
     Dosage: 1.5 MG/KG, QD
     Route: 042
     Dates: start: 20100701, end: 20100701
  3. THYMOGLOBULIN [Suspect]
     Dosage: 1 MG/KG, QD
     Route: 042
     Dates: start: 20100702, end: 20100703
  4. PREDNISONE [Concomitant]
     Indication: PROPHYLAXIS AGAINST TRANSPLANT REJECTION
     Dosage: 40 MG, QD
     Route: 065
  5. TACROLIMUS [Concomitant]
     Indication: PROPHYLAXIS AGAINST TRANSPLANT REJECTION
     Dosage: 2 MG, BID
     Route: 065
     Dates: start: 20100701
  6. TACROLIMUS [Concomitant]
     Dosage: 1 MG, QD
     Route: 065
  7. PREDNISONE [Concomitant]
     Dosage: 10 MG, QOD
     Route: 065
     Dates: start: 20100629, end: 20101029
  8. CYCLOPHOSPHAMIDE [Concomitant]
     Indication: PRODUCT USED FOR UNKNOWN INDICATION
     Dosage: 200 MG, QD
     Route: 065
     Dates: start: 20100701, end: 20100708
  9. TACROLIMUS [Concomitant]
     Dosage: 3 MG, QD
     Route: 065
     Dates: start: 20100712, end: 20101029
  10. MYCOPHENOLATE MOFETIL [Concomitant]
     Dosage: 500 MG, QD
     Route: 065
  11. METHYLPREDNISOLONE [Concomitant]
     Indication: PRODUCT USED FOR UNKNOWN INDICATION
     Dosage: 500 MG, QD
     Route: 042
     Dates: start: 20100701, end: 20100703
  12. MYCOPHENOLATE MOFETIL [Concomitant]
     Indication: PROPHYLAXIS AGAINST TRANSPLANT REJECTION
     Dosage: 500 MG, TID
     Route: 065
     Dates: start: 20100629, end: 20101029

REACTIONS (5)
  - ASPERGILLOSIS [None]
  - ENDOCARDITIS [None]
  - ENDOPHTHALMITIS [None]
  - MITRAL VALVE INCOMPETENCE [None]
  - TRANSPLANT REJECTION [None]
